FAERS Safety Report 5261354-X (Version None)
Quarter: 2007Q1

REPORT INFORMATION
  Report Type: 
  Country: None (occurrence: None)
  Receive Date: 20070307
  Receipt Date: 20070220
  Transmission Date: 20070707
  Serious: Yes (Disabling)
  Sender: FDA-Public Use
  Company Number: STI-2007-00049

PATIENT
  Age: 14 Year
  Sex: Male

DRUGS (2)
  1. 568A CLINAMYCIN PHOSPHATE PLEDGETS 1% (CLINDAMYCIN) (CLINDAMYCIN [Suspect]
     Indication: ACNE
     Dosage: TOPICAL
     Route: 061
     Dates: start: 20030401
  2. ADVIL [Concomitant]

REACTIONS (6)
  - DEAFNESS NEUROSENSORY [None]
  - DEAFNESS UNILATERAL [None]
  - HAEMANGIOMA [None]
  - HEADACHE [None]
  - ILL-DEFINED DISORDER [None]
  - TINNITUS [None]
